FAERS Safety Report 23268280 (Version 1)
Quarter: 2023Q4

REPORT INFORMATION
  Report Type: Spontaneous
  Country: CA (occurrence: CA)
  Receive Date: 20231206
  Receipt Date: 20231206
  Transmission Date: 20240109
  Serious: Yes (Other)
  Sender: FDA-Public Use
  Company Number: CA-PFIZER INC-202300419169

PATIENT
  Age: 11 Year
  Sex: Female

DRUGS (6)
  1. SOMATROPIN [Suspect]
     Active Substance: SOMATROPIN
     Indication: Growth hormone deficiency
     Dosage: 555 UG (0.55 MG/KG 6 DAYS/WEEK)
     Route: 058
     Dates: start: 2019
  2. SOMATROPIN [Suspect]
     Active Substance: SOMATROPIN
     Dosage: 750 UG (0.75 MG/KG 6 DAYS/WEEK)
     Route: 058
     Dates: start: 2021
  3. SOMATROPIN [Suspect]
     Active Substance: SOMATROPIN
     Dosage: 850 UG (0.85 MG 6X/WEEK)
     Route: 058
     Dates: start: 2022, end: 2022
  4. SOMATROPIN [Suspect]
     Active Substance: SOMATROPIN
     Dosage: 1000 UG (1.0 MG SC 6X/WEEK)
     Route: 058
     Dates: start: 2022
  5. SOMATROPIN [Suspect]
     Active Substance: SOMATROPIN
     Dosage: 1200 UG (1.2 GM 6X/WEEK)
     Route: 058
     Dates: start: 2023
  6. SYNTHROID [Concomitant]
     Active Substance: LEVOTHYROXINE SODIUM
     Dosage: UNK

REACTIONS (1)
  - Seizure [Recovered/Resolved]

NARRATIVE: CASE EVENT DATE: 20230101
